FAERS Safety Report 8075914-4 (Version None)
Quarter: 2012Q1

REPORT INFORMATION
  Report Type: 
  Country: None (occurrence: None)
  Receive Date: 20120127
  Receipt Date: 20120119
  Transmission Date: 20120608
  Serious: Yes (Hospitalization)
  Sender: FDA-Public Use
  Company Number: US-BAYER-2012-007469

PATIENT
  Age: 41 Year
  Sex: Female

DRUGS (7)
  1. YASMIN [Suspect]
  2. IMMUNE GLOBULIN NOS [Concomitant]
     Route: 042
  3. IMURAN [Concomitant]
  4. LEVAQUIN [Concomitant]
     Indication: PNEUMONIA
  5. PREDNISONE TAB [Concomitant]
     Indication: POLYMYOSITIS
  6. YAZ [Suspect]
     Dosage: UNK
     Dates: start: 20060501
  7. HIGH-DOSE STEROIDS [Concomitant]

REACTIONS (2)
  - DEEP VEIN THROMBOSIS [None]
  - PULMONARY EMBOLISM [None]
